FAERS Safety Report 7644939-2 (Version None)
Quarter: 2011Q3

REPORT INFORMATION
  Report Type: 
  Country: None (occurrence: None)
  Receive Date: 20110729
  Receipt Date: 20110712
  Transmission Date: 20111222
  Serious: Yes (Hospitalization)
  Sender: FDA-Public Use
  Company Number: US-GLAXOSMITHKLINE-A0886520A

PATIENT
  Sex: Female
  Weight: 91.4 kg

DRUGS (9)
  1. EFFEXOR [Concomitant]
  2. NEURONTIN [Concomitant]
  3. WELLBUTRIN [Concomitant]
  4. PRILOSEC [Concomitant]
  5. AVANDIA [Suspect]
     Indication: DIABETES MELLITUS
     Dosage: 8MG UNKNOWN
     Route: 048
     Dates: end: 20070101
  6. TRICOR [Concomitant]
  7. AMARYL [Concomitant]
  8. DIOVAN [Concomitant]
  9. METOPROLOL TARTRATE [Concomitant]

REACTIONS (4)
  - CORONARY ARTERY DISEASE [None]
  - CEREBROVASCULAR ACCIDENT [None]
  - CARDIAC DISORDER [None]
  - MYOCARDIAL INFARCTION [None]
